APPROVED DRUG PRODUCT: AMOXICILLIN
Active Ingredient: AMOXICILLIN
Strength: 250MG/5ML
Dosage Form/Route: FOR SUSPENSION;ORAL
Application: A063001 | Product #001
Applicant: TEVA PHARMACEUTICALS USA INC
Approved: Jan 6, 1989 | RLD: No | RS: No | Type: DISCN